FAERS Safety Report 8808607 (Version 1)
Quarter: 2012Q4

REPORT INFORMATION
  Report Type: 
  Country: US (occurrence: US)
  Receive Date: 20120926
  Receipt Date: 20120926
  Transmission Date: 20130627
  Serious: Yes (Hospitalization)
  Sender: FDA-Public Use
  Company Number: US-MYLANLABS-2012S1019230

PATIENT
  Age: 45 Year
  Sex: Male

DRUGS (8)
  1. VALPROATE SODIUM [Suspect]
     Indication: EPILEPSY
     Route: 065
  2. VALPROATE SODIUM [Interacting]
     Indication: EPILEPSY
     Route: 065
  3. LAMOTRIGINE [Interacting]
     Indication: EPILEPSY
     Route: 065
  4. RISPERIDONE [Concomitant]
     Dosage: 3mg daily
     Route: 065
  5. THIAMINE [Concomitant]
     Dosage: 100mg daily
     Route: 065
  6. COLECALCIFEROL [Concomitant]
     Dosage: 2000 IU daily
     Route: 065
  7. TOPIRAMATE [Concomitant]
     Route: 065
  8. LORAZEPAM [Concomitant]
     Route: 065

REACTIONS (7)
  - Toxicity to various agents [Recovered/Resolved]
  - Mental status changes [Recovered/Resolved]
  - Drug interaction [Recovered/Resolved]
  - Ataxia [None]
  - Dysarthria [None]
  - Hallucination [None]
  - Aggression [None]
